FAERS Safety Report 6798367-2 (Version None)
Quarter: 2010Q2

REPORT INFORMATION
  Report Type: 
  Country: None (occurrence: None)
  Receive Date: 20100622
  Receipt Date: 20100608
  Transmission Date: 20101027
  Serious: Yes (Hospitalization)
  Sender: FDA-Public Use
  Company Number: KV200900666

PATIENT
  Age: 61 Year
  Sex: Female
  Weight: 56 kg

DRUGS (12)
  1. MORPHINE SULFATE [Suspect]
     Indication: MIGRAINE
     Dosage: 15 MG, TID, ORAL
     Route: 048
     Dates: start: 20081022, end: 20081105
  2. AMBIEN CR [Concomitant]
  3. PRILOSEC [Concomitant]
  4. BENTYL [Concomitant]
  5. ATIVAN [Concomitant]
  6. DARVOCET [Concomitant]
  7. LYRICA [Concomitant]
  8. OMACOR /01403701/ (OMEGA-3 MARINE TRIGLYCERIDES) [Concomitant]
  9. TRAZODONE HCL [Concomitant]
  10. CYCLOBENZAPRINE [Concomitant]
  11. INDOCIN /00003801/ (INDOMETACIN) [Concomitant]
  12. ACIPHEX [Concomitant]

REACTIONS (34)
  - ABDOMINAL DISCOMFORT [None]
  - ABDOMINAL PAIN [None]
  - AGITATION [None]
  - ANXIETY [None]
  - APNOEA [None]
  - BARRETT'S OESOPHAGUS [None]
  - CHEST DISCOMFORT [None]
  - CHEST PAIN [None]
  - CHILLS [None]
  - CONSTIPATION [None]
  - DEPRESSION [None]
  - DIARRHOEA [None]
  - DRUG DEPENDENCE [None]
  - DRUG INEFFECTIVE FOR UNAPPROVED INDICATION [None]
  - DRUG WITHDRAWAL SYNDROME [None]
  - DRY SKIN [None]
  - DUODENITIS [None]
  - DYSPNOEA [None]
  - GASTRITIS [None]
  - GASTROINTESTINAL TOXICITY [None]
  - HAEMORRHOIDS [None]
  - HOT FLUSH [None]
  - INSOMNIA [None]
  - IRRITABLE BOWEL SYNDROME [None]
  - MIGRAINE [None]
  - NAUSEA [None]
  - OVERDOSE [None]
  - POLYP COLORECTAL [None]
  - PRURITUS [None]
  - RASH [None]
  - RESPIRATORY DEPRESSION [None]
  - STRESS [None]
  - VOMITING [None]
  - WEIGHT DECREASED [None]
